FAERS Safety Report 6717508-6 (Version None)
Quarter: 2010Q2

REPORT INFORMATION
  Report Type: 
  Country: None (occurrence: None)
  Receive Date: 20100510
  Receipt Date: 20100429
  Transmission Date: 20101027
  Serious: Yes (Other)
  Sender: FDA-Public Use
  Company Number: FR-ROCHE-701708

PATIENT
  Sex: Female

DRUGS (2)
  1. CAPECITABINE [Suspect]
     Dosage: UNK
     Route: 048
     Dates: start: 20091215
  2. LAPATINIB [Suspect]
     Dosage: UNK
     Route: 048
     Dates: start: 20091215

REACTIONS (1)
  - SKIN FISSURES [None]
